FAERS Safety Report 7686642-9 (Version None)
Quarter: 2011Q3

REPORT INFORMATION
  Report Type: 
  Country: None (occurrence: None)
  Receive Date: 20110816
  Receipt Date: 20110816
  Transmission Date: 20111222
  Serious: Yes (Other)
  Sender: FDA-Public Use
  Company Number: None

PATIENT
  Age: 63 Year
  Sex: Female
  Weight: 72.574 kg

DRUGS (1)
  1. LIOTHYRONINE SODIUM [Suspect]
     Indication: THYROID DISORDER
     Dosage: 1 TAB
     Route: 060
     Dates: start: 20110320, end: 20110804

REACTIONS (4)
  - INCREASED APPETITE [None]
  - WEIGHT INCREASED [None]
  - ARTHRALGIA [None]
  - MUSCLE SPASMS [None]
